FAERS Safety Report 19919211 (Version 1)
Quarter: 2021Q4

REPORT INFORMATION
  Report Type: Spontaneous
  Country: US (occurrence: US)
  Receive Date: 20211004
  Receipt Date: 20211004
  Transmission Date: 20220303
  Serious: No
  Sender: FDA-Public Use
  Company Number: 2021A738245

PATIENT
  Sex: Male

DRUGS (1)
  1. SYMBICORT [Suspect]
     Active Substance: BUDESONIDE\FORMOTEROL FUMARATE DIHYDRATE
     Dosage: 2 PUFFS TWICE A DAY.
     Route: 055

REACTIONS (4)
  - Dyspnoea [Recovered/Resolved]
  - Intentional product misuse [Unknown]
  - Intentional device misuse [Unknown]
  - Device malfunction [Unknown]
